FAERS Safety Report 16681691 (Version 1)
Quarter: 2019Q3

REPORT INFORMATION
  Report Type: Spontaneous
  Country: US (occurrence: US)
  Receive Date: 20190808
  Receipt Date: 20190808
  Transmission Date: 20191004
  Serious: No
  Sender: FDA-Public Use
  Company Number: US-TEVA-2019-US-1087423

PATIENT
  Sex: Female

DRUGS (2)
  1. MUPIROCIN OINTMENT [Suspect]
     Active Substance: MUPIROCIN
     Indication: ARTHROPOD BITE
     Dates: start: 20190730
  2. MUPIROCIN OINTMENT [Suspect]
     Active Substance: MUPIROCIN
     Indication: RASH
     Route: 065
     Dates: start: 20190730

REACTIONS (4)
  - Hyperhidrosis [Unknown]
  - Product use in unapproved indication [Unknown]
  - Dysuria [Unknown]
  - Arthralgia [Recovered/Resolved]

NARRATIVE: CASE EVENT DATE: 20190731
